FAERS Safety Report 19562874 (Version 5)
Quarter: 2021Q4

REPORT INFORMATION
  Report Type: Spontaneous
  Country: US (occurrence: US)
  Receive Date: 20210716
  Receipt Date: 20211018
  Transmission Date: 20220303
  Serious: Yes (Other)
  Sender: FDA-Public Use
  Company Number: US-GLAXOSMITHKLINE-US2021AMR152136

PATIENT
  Age: 67 Year
  Sex: Female

DRUGS (6)
  1. BENLYSTA [Suspect]
     Active Substance: BELIMUMAB
     Indication: Cutaneous lupus erythematosus
     Dosage: 200 MG/ML, WE
     Dates: start: 202012
  2. BENLYSTA [Suspect]
     Active Substance: BELIMUMAB
     Indication: Cutaneous lupus erythematosus
     Dosage: 200 MG/ML, WE
     Route: 058
  3. BENLYSTA [Suspect]
     Active Substance: BELIMUMAB
  4. BENLYSTA [Suspect]
     Active Substance: BELIMUMAB
     Indication: Cutaneous lupus erythematosus
     Dosage: 200 MG/ML, WE
     Route: 058
     Dates: start: 202012
  5. BENLYSTA [Suspect]
     Active Substance: BELIMUMAB
  6. BENLYSTA [Suspect]
     Active Substance: BELIMUMAB

REACTIONS (9)
  - Renal impairment [Unknown]
  - Peripheral swelling [Unknown]
  - Overweight [Unknown]
  - Decreased activity [Unknown]
  - Dyspnoea [Unknown]
  - Urinary tract infection [Not Recovered/Not Resolved]
  - Illness [Unknown]
  - Infection [Recovered/Resolved]
  - Product use in unapproved indication [Unknown]

NARRATIVE: CASE EVENT DATE: 20210701
